FAERS Safety Report 9242314 (Version 1)
Quarter: 2013Q2

REPORT INFORMATION
  Report Type: Report from Study
  Country: AU (occurrence: AU)
  Receive Date: 20130419
  Receipt Date: 20130419
  Transmission Date: 20140414
  Serious: Yes (Hospitalization)
  Sender: FDA-Public Use
  Company Number: AU-JNJFOC-20130407373

PATIENT
  Sex: Male
  Weight: 3.15 kg

DRUGS (6)
  1. REMICADE [Suspect]
     Indication: EXPOSURE DURING BREAST FEEDING
     Route: 064
     Dates: start: 20120403
  2. REMICADE [Suspect]
     Indication: FOETAL EXPOSURE DURING PREGNANCY
     Route: 064
     Dates: start: 20120403
  3. PANADEINE FORTE [Suspect]
     Indication: EXPOSURE DURING BREAST FEEDING
     Route: 064
  4. PANADEINE FORTE [Suspect]
     Indication: FOETAL EXPOSURE DURING PREGNANCY
     Route: 064
  5. ANALGESIC [Suspect]
     Indication: FOETAL EXPOSURE DURING PREGNANCY
     Route: 008
     Dates: start: 20121224, end: 20121224
  6. ELEVIT [Concomitant]
     Indication: FOETAL EXPOSURE DURING PREGNANCY
     Route: 064
     Dates: start: 201205

REACTIONS (2)
  - Jaundice neonatal [Recovered/Resolved]
  - Breast feeding [Unknown]
